FAERS Safety Report 13542976 (Version 2)
Quarter: 2017Q2

REPORT INFORMATION
  Report Type: Spontaneous
  Country: DE (occurrence: DE)
  Receive Date: 20170513
  Receipt Date: 20170613
  Transmission Date: 20170830
  Serious: Yes (Life-Threatening, Other)
  Sender: FDA-Public Use
  Company Number: DE-TORRENT-00006491

PATIENT
  Sex: Female

DRUGS (7)
  1. MIDAZOLAM [Suspect]
     Active Substance: MIDAZOLAM HYDROCHLORIDE
  2. PHENOBARBITAL. [Suspect]
     Active Substance: PHENOBARBITAL
  3. PYRIDOXAL PHOSPHATE [Suspect]
     Active Substance: PYRIDOXAL PHOSPHATE
  4. VITAMIN B6 [Suspect]
     Active Substance: PYRIDOXINE HYDROCHLORIDE
  5. PHENYTOIN. [Concomitant]
     Active Substance: PHENYTOIN
  6. TOPIRAMATE. [Suspect]
     Active Substance: TOPIRAMATE
  7. CARBAMAZEPINE. [Concomitant]
     Active Substance: CARBAMAZEPINE

REACTIONS (1)
  - Drug ineffective [Unknown]
